FAERS Safety Report 9795800 (Version 1)
Quarter: 2014Q1

REPORT INFORMATION
  Report Type: Spontaneous
  Country: FR (occurrence: FR)
  Receive Date: 20140103
  Receipt Date: 20140103
  Transmission Date: 20141002
  Serious: Yes (Hospitalization)
  Sender: FDA-Public Use
  Company Number: FR-SA-2013SA135931

PATIENT
  Age: 30 Year
  Sex: Male

DRUGS (5)
  1. RIFADINE [Suspect]
     Indication: STREPTOCOCCAL INFECTION
     Dosage: INFUSION
     Dates: start: 20131011, end: 20131014
  2. CLAMOXYL [Suspect]
     Indication: STREPTOCOCCAL INFECTION
     Dosage: INFUSION, STRENGTH: 1 G
     Dates: start: 20131011, end: 20131014
  3. NEFOPAM [Suspect]
     Indication: PAIN
     Dosage: 1 VIAL FOUR TIMES A DAY IF NEEDED, STRENGTH: 20 MG/2ML
     Route: 042
     Dates: start: 20130826, end: 20131014
  4. VAXIGRIP INFLUENZA VACCINE [Suspect]
     Indication: INFLUENZA
     Route: 058
     Dates: start: 20131014, end: 20131014
  5. BUPRENORPHINE [Concomitant]
     Indication: PROPHYLAXIS
     Route: 048

REACTIONS (2)
  - Aggression [Recovered/Resolved]
  - Confusional state [Recovered/Resolved]
